FAERS Safety Report 8782044 (Version 4)
Quarter: 2013Q2

REPORT INFORMATION
  Report Type: Spontaneous
  Country: US (occurrence: US)
  Receive Date: 20120913
  Receipt Date: 20130531
  Transmission Date: 20140414
  Serious: Yes (Other)
  Sender: FDA-Public Use
  Company Number: US-PERRIGO-10US014038

PATIENT
  Age: 39 Year
  Sex: Female
  Weight: 77.01 kg

DRUGS (5)
  1. NAPROXEN SODIUM-PSEUDOEPHEDRINE HYDROCHLORIDE ER 253 [Suspect]
     Indication: NASOPHARYNGITIS
     Dosage: 2 TABLETS, SINGLE
     Route: 048
     Dates: start: 20101014, end: 20101014
  2. NAPROXEN SODIUM-PSEUDOEPHEDRINE HYDROCHLORIDE ER 253 [Suspect]
     Indication: SINUS HEADACHE
  3. JOLESSA [Concomitant]
     Indication: CONTRACEPTION
     Dosage: UNK
     Route: 048
     Dates: start: 2009
  4. FLUTICASONE [Concomitant]
     Indication: RHINITIS ALLERGIC
     Dosage: UNK, QD
     Route: 045
     Dates: start: 2009
  5. CLARITIN [Concomitant]
     Indication: RHINITIS ALLERGIC
     Dosage: UNK, QD
     Route: 048
     Dates: start: 2009

REACTIONS (5)
  - Eye swelling [Recovered/Resolved]
  - Lip swelling [Recovered/Resolved]
  - Swelling face [Recovered/Resolved]
  - Rash erythematous [Recovered/Resolved]
  - Incorrect dose administered [Recovered/Resolved]
